FAERS Safety Report 10565365 (Version 1)
Quarter: 2014Q4

REPORT INFORMATION
  Report Type: Spontaneous
  Country: US (occurrence: None)
  Receive Date: 20141104
  Receipt Date: 20141104
  Transmission Date: 20150529
  Serious: No
  Sender: FDA-Public Use
  Company Number: None

PATIENT
  Age: 18 Year
  Sex: Female
  Weight: 56.7 kg

DRUGS (2)
  1. HALODERM 500MG ELKO ORG [Suspect]
     Active Substance: CLOBETASOL PROPIONATE
     Indication: SKIN DISCOLOURATION
     Dosage: I^M NOT SURE ITS ALOT I^VE USE?TWICE DAILY?APPLIED TO A SURGFACE, USUALLY THE SKIN
     Route: 061
     Dates: start: 20130914, end: 20141017
  2. CLOBETASOL PROPIONATE. [Suspect]
     Active Substance: CLOBETASOL PROPIONATE

REACTIONS (3)
  - Skin striae [None]
  - Application site reaction [None]
  - Depression [None]

NARRATIVE: CASE EVENT DATE: 20141017
